FAERS Safety Report 16584131 (Version 2)
Quarter: 2019Q3

REPORT INFORMATION
  Report Type: Spontaneous
  Country: US (occurrence: US)
  Receive Date: 20190717
  Receipt Date: 20190816
  Transmission Date: 20191004
  Serious: No
  Sender: FDA-Public Use
  Company Number: US-VIIV HEALTHCARE LIMITED-US2019126995

PATIENT
  Sex: Male
  Weight: 98.87 kg

DRUGS (1)
  1. TRIUMEQ [Suspect]
     Active Substance: ABACAVIR SULFATE\DOLUTEGRAVIR SODIUM\LAMIVUDINE
     Indication: PRODUCT USED FOR UNKNOWN INDICATION
     Dosage: 1 DF, QD (1 TABLET BY MOUTH DAILY)
     Route: 048
     Dates: start: 2018

REACTIONS (2)
  - Mucosal hypertrophy [Unknown]
  - Oral disorder [Recovering/Resolving]
